FAERS Safety Report 8223754-5 (Version None)
Quarter: 2012Q1

REPORT INFORMATION
  Report Type: 
  Country: None (occurrence: None)
  Receive Date: 20120321
  Receipt Date: 20120309
  Transmission Date: 20120608
  Serious: Yes (Hospitalization, Other)
  Sender: FDA-Public Use
  Company Number: FR-JNJFOC-20111201665

PATIENT
  Sex: Male
  Weight: 38.2 kg

DRUGS (9)
  1. CHOLECALCIFEROL [Concomitant]
  2. AZATHIOPRINE [Concomitant]
     Indication: CROHN'S DISEASE
  3. PREDNISONE [Concomitant]
  4. INFLIXIMAB, RECOMBINANT [Suspect]
     Dosage: INTERVAL OF DOSING WAS SHORTENED FROM EVERY 6 WKS TO EVERY 4 WKS TO EXPLAIN THE ^ DOSE INCREASE^
     Route: 042
     Dates: start: 20100301
  5. IRON [Concomitant]
  6. OMEPRAZOLE [Concomitant]
  7. ENTERAL NUTRITION [Concomitant]
     Route: 050
  8. ANTIBIOTICS [Concomitant]
     Indication: CROHN'S DISEASE
  9. INFLIXIMAB, RECOMBINANT [Suspect]
     Indication: CROHN'S DISEASE
     Route: 042
     Dates: start: 20110101

REACTIONS (1)
  - CROHN'S DISEASE [None]
